FAERS Safety Report 13922975 (Version 2)
Quarter: 2017Q4

REPORT INFORMATION
  Report Type: Spontaneous
  Country: GB (occurrence: GB)
  Receive Date: 20170830
  Receipt Date: 20171110
  Transmission Date: 20180320
  Serious: Yes (Disabling, Other)
  Sender: FDA-Public Use
  Company Number: GB-MYLANLABS-2017M1053383

PATIENT
  Sex: Male

DRUGS (5)
  1. CLOZAPINE. [Suspect]
     Active Substance: CLOZAPINE
     Indication: AGITATION
     Dosage: 225 MG, QD
     Dates: start: 2005
  2. CLOZAPINE. [Suspect]
     Active Substance: CLOZAPINE
     Dosage: 125 MG, PM
  3. CLOZAPINE. [Suspect]
     Active Substance: CLOZAPINE
     Dosage: 100 MG, NOON
     Dates: start: 2012
  4. LORAZEPAM. [Suspect]
     Active Substance: LORAZEPAM
     Indication: PRODUCT USED FOR UNKNOWN INDICATION
     Dosage: UNK
  5. CLOZAPINE. [Suspect]
     Active Substance: CLOZAPINE
     Indication: NERVOUSNESS
     Dosage: 100 MG, AM
     Dates: start: 2012

REACTIONS (16)
  - Musculoskeletal stiffness [Unknown]
  - Hypotension [Unknown]
  - Parkinson^s disease [Unknown]
  - Agitation [Unknown]
  - Tremor [Unknown]
  - Autism spectrum disorder [Unknown]
  - Feeling abnormal [Unknown]
  - Condition aggravated [Unknown]
  - Somnolence [Unknown]
  - Wrong technique in product usage process [Unknown]
  - Visual impairment [Unknown]
  - Weight decreased [Unknown]
  - Heart rate increased [Unknown]
  - Salivary hypersecretion [Unknown]
  - Living in residential institution [Unknown]
  - Product use in unapproved indication [Unknown]

NARRATIVE: CASE EVENT DATE: 2005
